FAERS Safety Report 6604135-4 (Version None)
Quarter: 2010Q1

REPORT INFORMATION
  Report Type: 
  Country: None (occurrence: None)
  Receive Date: 20100226
  Receipt Date: 20090604
  Transmission Date: 20100710
  Serious: Yes (Other)
  Sender: FDA-Public Use
  Company Number: A0788834A

PATIENT
  Age: 26 Year
  Sex: Female

DRUGS (2)
  1. LAMOTRIGINE [Suspect]
     Dosage: 100MG PER DAY
     Route: 048
     Dates: start: 20060101
  2. FOLIC ACID [Concomitant]

REACTIONS (1)
  - CONVULSION [None]
